FAERS Safety Report 8419102-8 (Version None)
Quarter: 2012Q2

REPORT INFORMATION
  Report Type: 
  Country: None (occurrence: None)
  Receive Date: 20120530
  Receipt Date: 20120515
  Transmission Date: 20120825
  Serious: Yes (Other)
  Sender: FDA-Public Use
  Company Number: DSJ-2012-08828

PATIENT
  Age: 56 Year
  Sex: Male

DRUGS (3)
  1. NORVASC [Suspect]
     Indication: HYPERTENSION
     Dosage: 10 MG, PER ORAL
     Route: 048
     Dates: start: 20111201
  2. TENORMIN [Concomitant]
  3. OLMESARTAN MEDOXOMIL [Suspect]
     Indication: HYPERTENSION
     Dosage: 20 MG 40 MG 20 MG
     Dates: start: 20111101

REACTIONS (2)
  - BLOOD PRESSURE INCREASED [None]
  - GINGIVAL HYPERTROPHY [None]
